FAERS Safety Report 5622358-8 (Version None)
Quarter: 2008Q1

REPORT INFORMATION
  Report Type: 
  Country: None (occurrence: None)
  Receive Date: 20080211
  Receipt Date: 20080205
  Transmission Date: 20080703
  Serious: Yes (Death, Other)
  Sender: FDA-Public Use
  Company Number: FR-PFIZER INC-2003188438FR

PATIENT
  Sex: Female
  Weight: 86 kg

DRUGS (3)
  1. AROMASIN [Suspect]
     Indication: BREAST CANCER
     Route: 048
  2. DETENSIEL [Concomitant]
     Indication: HYPERTENSION
     Route: 048
  3. STILNOX [Concomitant]
     Indication: INSOMNIA
     Route: 048
     Dates: start: 20020501

REACTIONS (1)
  - PULMONARY EMBOLISM [None]
